FAERS Safety Report 23326138 (Version 1)
Quarter: 2023Q4

REPORT INFORMATION
  Report Type: Spontaneous
  Country: CN (occurrence: CN)
  Receive Date: 20231221
  Receipt Date: 20231221
  Transmission Date: 20240110
  Serious: Yes (Other)
  Sender: FDA-Public Use
  Company Number: CN-ELI_LILLY_AND_COMPANY-CN202312006309

PATIENT
  Age: 83 Year
  Sex: Male
  Weight: 46.5 kg

DRUGS (6)
  1. PEMETREXED [Suspect]
     Active Substance: PEMETREXED
     Indication: Lung adenocarcinoma stage IV
     Dosage: 0.5 G, SINGLE
     Route: 041
     Dates: start: 20231028, end: 20231028
  2. PEMETREXED [Suspect]
     Active Substance: PEMETREXED
     Indication: Metastases to lung
  3. PEMETREXED [Suspect]
     Active Substance: PEMETREXED
     Indication: Metastases to central nervous system
  4. SODIUM CHLORIDE [Concomitant]
     Active Substance: SODIUM CHLORIDE
     Indication: Lung adenocarcinoma stage IV
     Dosage: UNK UNK, DAILY
     Route: 041
     Dates: start: 20231028, end: 20231028
  5. SODIUM CHLORIDE [Concomitant]
     Active Substance: SODIUM CHLORIDE
     Indication: Metastases to lung
  6. SODIUM CHLORIDE [Concomitant]
     Active Substance: SODIUM CHLORIDE
     Indication: Metastases to central nervous system

REACTIONS (4)
  - Renal function test abnormal [Recovered/Resolved]
  - Liver function test abnormal [Recovered/Resolved]
  - Vomiting [Recovered/Resolved]
  - Nausea [Recovered/Resolved]

NARRATIVE: CASE EVENT DATE: 20231028
